FAERS Safety Report 5553842-3 (Version None)
Quarter: 2007Q4

REPORT INFORMATION
  Report Type: 
  Country: None (occurrence: None)
  Receive Date: 20071213
  Receipt Date: 20071207
  Transmission Date: 20080405
  Serious: Yes (Hospitalization, Other)
  Sender: FDA-Public Use
  Company Number: AU-AVENTIS-200721263GDDC

PATIENT
  Age: 70 Year
  Sex: Female

DRUGS (1)
  1. ARAVA [Suspect]
     Indication: RHEUMATOID ARTHRITIS
     Route: 048
     Dates: start: 20050716

REACTIONS (4)
  - CORONARY ARTERY BYPASS [None]
  - DENTAL CARIES [None]
  - GINGIVAL DISORDER [None]
  - STAPHYLOCOCCAL INFECTION [None]
